FAERS Safety Report 9340728 (Version 1)
Quarter: 2013Q2

REPORT INFORMATION
  Report Type: Spontaneous
  Country: FR (occurrence: FR)
  Receive Date: 20130610
  Receipt Date: 20130610
  Transmission Date: 20140414
  Serious: Yes (Other)
  Sender: FDA-Public Use
  Company Number: FR-GLAXOSMITHKLINE-B0898176A

PATIENT
  Sex: Male
  Weight: 68 kg

DRUGS (1)
  1. ALKERAN [Suspect]
     Indication: PRODUCT USED FOR UNKNOWN INDICATION
     Route: 048
     Dates: start: 20111205

REACTIONS (2)
  - Agranulocytosis [Unknown]
  - Incorrect dose administered [Unknown]
